FAERS Safety Report 12289611 (Version 1)
Quarter: 2016Q2

REPORT INFORMATION
  Report Type: Spontaneous
  Country: JO (occurrence: JO)
  Receive Date: 20160421
  Receipt Date: 20160421
  Transmission Date: 20160815
  Serious: Yes (Death)
  Sender: FDA-Public Use
  Company Number: JO-EISAI MEDICAL RESEARCH-EC-2016-016113

PATIENT
  Age: 39 Year

DRUGS (1)
  1. HALAVEN [Suspect]
     Active Substance: ERIBULIN MESYLATE
     Indication: SOFT TISSUE SARCOMA
     Route: 041
     Dates: start: 201602, end: 201603

REACTIONS (2)
  - Product use issue [Fatal]
  - Death [Fatal]

NARRATIVE: CASE EVENT DATE: 201603
